FAERS Safety Report 4291056-8 (Version None)
Quarter: 2004Q1

REPORT INFORMATION
  Report Type: 
  Country: None (occurrence: None)
  Receive Date: 20040209
  Receipt Date: 20040202
  Transmission Date: 20041129
  Serious: Yes (Death)
  Sender: FDA-Public Use
  Company Number: 200410415FR

PATIENT
  Age: 94 Year
  Sex: Female

DRUGS (8)
  1. LANTUS [Suspect]
     Indication: DIABETES MELLITUS NON-INSULIN-DEPENDENT
     Dosage: 22 IU/DAY SC
     Route: 058
     Dates: start: 20031024, end: 20031112
  2. FUROSEMIDE [Concomitant]
  3. ISOSORBIDE DINITRATE [Concomitant]
  4. HYDROCHLOROTHIAZIDE, AMLORIDE HYDROCHLORIDE (MODURETIC ^MSD^) [Concomitant]
  5. DIGOXIN [Concomitant]
  6. GLYCERYL TRINITRATE (DISCOTRINE) [Concomitant]
  7. ENALAPRIL MALEATE (RENITEC) [Concomitant]
  8. SINTROM [Concomitant]

REACTIONS (5)
  - BONE MARROW DEPRESSION [None]
  - CARDIAC FAILURE [None]
  - CONDITION AGGRAVATED [None]
  - LEFT VENTRICULAR FAILURE [None]
  - PANCYTOPENIA [None]
